FAERS Safety Report 5481048-5 (Version None)
Quarter: 2007Q4

REPORT INFORMATION
  Report Type: 
  Country: None (occurrence: None)
  Receive Date: 20071009
  Receipt Date: 20070927
  Transmission Date: 20080405
  Serious: Yes (Disabling)
  Sender: FDA-Public Use
  Company Number: FI-PFIZER INC-2007081551

PATIENT
  Sex: Male

DRUGS (4)
  1. CABERGOLINE [Suspect]
     Indication: HYPOPITUITARISM
     Route: 048
     Dates: start: 20040503, end: 20070516
  2. THYROXIN [Concomitant]
     Route: 048
  3. TESTOSTERONE [Concomitant]
     Route: 030
  4. SUSTANON [Concomitant]
     Route: 030

REACTIONS (2)
  - AORTIC VALVE DISEASE [None]
  - CARDIAC MURMUR [None]
